FAERS Safety Report 6959535-X (Version None)
Quarter: 2010Q3

REPORT INFORMATION
  Report Type: 
  Country: None (occurrence: None)
  Receive Date: 20100827
  Receipt Date: 20100818
  Transmission Date: 20110219
  Serious: Yes (Other)
  Sender: FDA-Public Use
  Company Number: 2010US003346

PATIENT
  Age: 74 Year
  Sex: Female

DRUGS (11)
  1. AMEVIVE [Suspect]
     Indication: PSORIASIS
     Dosage: 15 MG, WEEKLY, INTRAMUSCULAR
     Route: 030
     Dates: start: 20040102, end: 20040317
  2. AMEVIVE [Suspect]
     Indication: PSORIASIS
     Dosage: 15 MG, WEEKLY, INTRAMUSCULAR
     Route: 030
     Dates: start: 20050601, end: 20050810
  3. CARVEDILOL [Concomitant]
  4. LYRICA [Concomitant]
  5. VITAMIN D (COLECALCIFEROL) [Concomitant]
  6. ALENDRONATE SODIUM [Concomitant]
  7. BENAZEPRIL HYDROCHLORIDE [Concomitant]
  8. GLIPIZIDE [Concomitant]
  9. LASIX [Concomitant]
  10. CORDRAN (FLUDROXYCORTIDE) [Concomitant]
  11. TACLONEX (BETAMETHASONE DIPROPIONATE, CALCIPOTRIOL) [Concomitant]

REACTIONS (6)
  - BASAL CELL CARCINOMA [None]
  - HAIR FOLLICLE TUMOUR BENIGN [None]
  - HIP SURGERY [None]
  - INTERVERTEBRAL DISC PROTRUSION [None]
  - SCAR [None]
  - THROMBOPHLEBITIS [None]
